FAERS Safety Report 7248898-6 (Version None)
Quarter: 2011Q1

REPORT INFORMATION
  Report Type: 
  Country: None (occurrence: None)
  Receive Date: 20110128
  Receipt Date: 20110117
  Transmission Date: 20110831
  Serious: Yes (Death, Other)
  Sender: FDA-Public Use
  Company Number: US-CELGENEUS-163-21880-11011769

PATIENT
  Age: 55 Year

DRUGS (10)
  1. CISPLATIN [Suspect]
     Indication: MULTIPLE MYELOMA
     Route: 065
  2. CYCLOPHOSPHAMIDE [Suspect]
     Indication: MULTIPLE MYELOMA
     Route: 065
  3. DOXORUBICIN [Suspect]
     Indication: MULTIPLE MYELOMA
     Route: 065
  4. VINCRISTINE [Suspect]
     Indication: MULTIPLE MYELOMA
     Route: 065
  5. CC-5013 [Suspect]
     Indication: MULTIPLE MYELOMA
     Route: 048
  6. THALOMID [Suspect]
     Indication: MULTIPLE MYELOMA
     Route: 048
  7. BORTEZOMIB [Suspect]
     Indication: MULTIPLE MYELOMA
     Route: 065
  8. DEXAMETHASONE [Suspect]
     Indication: MULTIPLE MYELOMA
     Route: 065
  9. ALKERAN [Suspect]
     Indication: MULTIPLE MYELOMA
     Route: 065
  10. VP-16 [Suspect]
     Indication: MULTIPLE MYELOMA
     Route: 065

REACTIONS (2)
  - MULTIPLE MYELOMA [None]
  - MYELODYSPLASTIC SYNDROME [None]
